FAERS Safety Report 9304009 (Version 1)
Quarter: 2013Q2

REPORT INFORMATION
  Report Type: Spontaneous
  Country: GB (occurrence: GB)
  Receive Date: 20130522
  Receipt Date: 20130522
  Transmission Date: 20140414
  Serious: Yes (Hospitalization)
  Sender: FDA-Public Use
  Company Number: PHHY2013GB050206

PATIENT
  Age: 68 Year
  Sex: Male
  Weight: 79 kg

DRUGS (4)
  1. VENLAFAXINE HYDROCHLORIDE [Suspect]
     Indication: DEPRESSION
     Dosage: 75 MG, UNK
     Route: 048
     Dates: start: 20121217
  2. SIMVASTATIN [Concomitant]
  3. TAMSULOSIN [Concomitant]
  4. FINASTERIDE [Concomitant]

REACTIONS (2)
  - Urinary retention [Recovered/Resolved]
  - Product formulation issue [Unknown]
